FAERS Safety Report 4680901-X (Version None)
Quarter: 2005Q2

REPORT INFORMATION
  Report Type: 
  Country: None (occurrence: None)
  Receive Date: 20050531
  Receipt Date: 20050531
  Transmission Date: 20051028
  Serious: Yes (Other)
  Sender: FDA-Public Use
  Company Number: None

PATIENT
  Age: 48 Year
  Sex: Male
  Weight: 90.7194 kg

DRUGS (4)
  1. NEXIUM [Suspect]
     Indication: GASTRITIS
     Dosage: 20MG ONCE DAILY BY MOUTH
     Route: 048
     Dates: start: 20050516, end: 20050519
  2. NEXIUM [Suspect]
     Indication: OESOPHAGEAL DISORDER
     Dosage: 20MG ONCE DAILY BY MOUTH
     Route: 048
     Dates: start: 20050516, end: 20050519
  3. NEXIUM [Suspect]
     Indication: GASTRITIS
     Dosage: 20MG ONCE DAILY BY MOUTH
     Route: 048
     Dates: start: 20050526
  4. NEXIUM [Suspect]
     Indication: OESOPHAGEAL DISORDER
     Dosage: 20MG ONCE DAILY BY MOUTH
     Route: 048
     Dates: start: 20050526

REACTIONS (4)
  - CONDITION AGGRAVATED [None]
  - GASTRITIS [None]
  - OESOPHAGEAL DISORDER [None]
  - PHARMACEUTICAL PRODUCT COMPLAINT [None]
